FAERS Safety Report 8323107-5 (Version None)
Quarter: 2012Q2

REPORT INFORMATION
  Report Type: 
  Country: None (occurrence: None)
  Receive Date: 20120430
  Receipt Date: 20120425
  Transmission Date: 20120825
  Serious: Yes (Hospitalization)
  Sender: FDA-Public Use
  Company Number: GB-ROCHE-1063550

PATIENT
  Age: 43 Year
  Sex: Male
  Weight: 100 kg

DRUGS (2)
  1. VEMURAFENIB [Suspect]
     Indication: MALIGNANT MELANOMA
     Dosage: 8 TABLET PER DAY
     Dates: start: 20120202, end: 20120211
  2. VEMURAFENIB [Suspect]
     Dosage: 6 TABLET PER DAY
     Dates: start: 20120217

REACTIONS (1)
  - ABDOMINAL PAIN [None]
